FAERS Safety Report 6048319-5 (Version None)
Quarter: 2009Q1

REPORT INFORMATION
  Report Type: 
  Country: None (occurrence: None)
  Receive Date: 20090123
  Receipt Date: 20090113
  Transmission Date: 20090719
  Serious: Yes (Other)
  Sender: FDA-Public Use
  Company Number: JP-PFIZER INC-2009154938

PATIENT

DRUGS (3)
  1. VORICONAZOLE [Suspect]
     Indication: PROPHYLAXIS
     Dosage: 400 MG, 1X/DAY
  2. FOSFLUCONAZOLE [Concomitant]
     Dosage: 400 MG, 1X/DAY
  3. MICAFUNGIN [Concomitant]
     Dosage: 150 MG, 1X/DAY

REACTIONS (1)
  - DRUG INEFFECTIVE [None]
